FAERS Safety Report 21579939 (Version 1)
Quarter: 2022Q4

REPORT INFORMATION
  Report Type: Spontaneous
  Country: US (occurrence: US)
  Receive Date: 20221110
  Receipt Date: 20221110
  Transmission Date: 20230113
  Serious: No
  Sender: FDA-Public Use
  Company Number: US-DSJP-DSU-2022-140686AA

PATIENT
  Age: 58 Year
  Sex: Female

DRUGS (2)
  1. ENHERTU [Suspect]
     Active Substance: FAM-TRASTUZUMAB DERUXTECAN-NXKI
     Indication: Malignant nipple neoplasm female
     Dosage: 577.8 MG, ONCE EVERY 3 WK
     Route: 042
     Dates: start: 20220221, end: 2022
  2. ENHERTU [Suspect]
     Active Substance: FAM-TRASTUZUMAB DERUXTECAN-NXKI
     Dosage: 572.4 MG, ONCE EVERY 3 WK
     Route: 042
     Dates: start: 20221108

REACTIONS (1)
  - Therapy change [Unknown]

NARRATIVE: CASE EVENT DATE: 20221108
